FAERS Safety Report 23178750 (Version 2)
Quarter: 2024Q1

REPORT INFORMATION
  Report Type: Spontaneous
  Country: CA (occurrence: CA)
  Receive Date: 20231113
  Receipt Date: 20240306
  Transmission Date: 20240410
  Serious: Yes (Hospitalization, Other)
  Sender: FDA-Public Use
  Company Number: CA-OTSUKA-2023_028974

PATIENT
  Sex: Female

DRUGS (5)
  1. REXULTI [Suspect]
     Active Substance: BREXPIPRAZOLE
     Indication: Major depression
     Dosage: UNK
     Route: 065
     Dates: start: 20191029, end: 20210304
  2. REXULTI [Suspect]
     Active Substance: BREXPIPRAZOLE
     Indication: Epilepsy
  3. LAMOTRIGINE [Concomitant]
     Active Substance: LAMOTRIGINE
     Indication: Seizure
     Dosage: 200 UNK, BID
     Route: 065
  4. FLUVOXAMINE [Concomitant]
     Active Substance: FLUVOXAMINE
     Indication: Depression
     Dosage: 200 MG, QD
     Route: 065
  5. CLONAZEPAM [Concomitant]
     Active Substance: CLONAZEPAM
     Indication: Product used for unknown indication
     Dosage: 0.5 MG, BID
     Route: 065

REACTIONS (8)
  - Loss of personal independence in daily activities [Recovered/Resolved]
  - Cerebrovascular accident [Unknown]
  - Musculoskeletal stiffness [Recovered/Resolved]
  - Fall [Recovered/Resolved]
  - Parkinsonism [Unknown]
  - Vision blurred [Recovered/Resolved]
  - Gait disturbance [Unknown]
  - Off label use [Unknown]
